FAERS Safety Report 4824455-3 (Version None)
Quarter: 2005Q4

REPORT INFORMATION
  Report Type: 
  Country: None (occurrence: None)
  Receive Date: 20051108
  Receipt Date: 20051026
  Transmission Date: 20060501
  Serious: Yes (Hospitalization)
  Sender: FDA-Public Use
  Company Number: USA0510111953

PATIENT
  Sex: Female

DRUGS (1)
  1. SARAFEM [Suspect]
     Dates: start: 20000101, end: 20000101

REACTIONS (2)
  - PANIC ATTACK [None]
  - SERUM SEROTONIN INCREASED [None]
